FAERS Safety Report 7028822-1 (Version None)
Quarter: 2010Q3

REPORT INFORMATION
  Report Type: 
  Country: None (occurrence: None)
  Receive Date: 20100830
  Receipt Date: 20100818
  Transmission Date: 20110219
  Serious: No
  Sender: FDA-Public Use
  Company Number: US-145075

PATIENT
  Age: 30 Year
  Sex: Female

DRUGS (1)
  1. WINRHO [Suspect]

REACTIONS (1)
  - HAEMOLYSIS [None]
